FAERS Safety Report 25903291 (Version 1)
Quarter: 2025Q4

REPORT INFORMATION
  Report Type: Spontaneous
  Country: EU (occurrence: EU)
  Receive Date: 20251009
  Receipt Date: 20251009
  Transmission Date: 20260117
  Serious: Yes (Other)
  Sender: SANOFI AVENTIS
  Company Number: EU-SANOFI-02593493

PATIENT
  Age: 45 Year
  Sex: Female

DRUGS (1)
  1. AUBAGIO [Suspect]
     Active Substance: TERIFLUNOMIDE
     Dosage: UNK
     Route: 065
     Dates: start: 202410

REACTIONS (5)
  - Arrhythmogenic right ventricular dysplasia [Unknown]
  - Cardiac failure [Unknown]
  - Ventricular extrasystoles [Unknown]
  - Extrasystoles [Unknown]
  - Left ventricular dysfunction [Unknown]
